FAERS Safety Report 5649107-1 (Version None)
Quarter: 2008Q1

REPORT INFORMATION
  Report Type: 
  Country: None (occurrence: None)
  Receive Date: 20080229
  Receipt Date: 20080221
  Transmission Date: 20080703
  Serious: Yes (Other)
  Sender: FDA-Public Use
  Company Number: 2008SP004012

PATIENT
  Age: 57 Year
  Sex: Male

DRUGS (3)
  1. CLARITIN [Suspect]
     Indication: RHINORRHOEA
     Dosage: 1 DF; QD; PO
     Route: 048
  2. CLARITIN [Suspect]
     Indication: SINUS CONGESTION
     Dosage: 1 DF; QD; PO
     Route: 048
  3. CLARITIN [Suspect]
     Indication: SNEEZING
     Dosage: 1 DF; QD; PO
     Route: 048

REACTIONS (2)
  - CHEST DISCOMFORT [None]
  - DYSPNOEA [None]
